FAERS Safety Report 7554376-7 (Version None)
Quarter: 2011Q2

REPORT INFORMATION
  Report Type: 
  Country: None (occurrence: None)
  Receive Date: 20110617
  Receipt Date: 20110606
  Transmission Date: 20111010
  Serious: Yes (Hospitalization)
  Sender: FDA-Public Use
  Company Number: JP-AMGEN-JPNCT2010001917

PATIENT
  Age: 72 Year
  Sex: Female
  Weight: 67 kg

DRUGS (16)
  1. LEUCOVORIN CALCIUM [Concomitant]
     Route: 041
     Dates: start: 20100721, end: 20110401
  2. FLUOROURACIL [Suspect]
     Indication: COLORECTAL CANCER
     Route: 040
     Dates: start: 20100721
  3. FLUOROURACIL [Suspect]
     Route: 041
     Dates: start: 20100721
  4. FLUOROURACIL [Suspect]
     Route: 040
     Dates: start: 20100721, end: 20110401
  5. PANITUMUMAB [Suspect]
     Dosage: 6 MG, Q2WK
     Route: 041
     Dates: start: 20101012, end: 20110222
  6. FLUOROURACIL [Suspect]
     Route: 041
     Dates: start: 20100721, end: 20101011
  7. PERDIPINE [Concomitant]
     Dosage: UNK
     Route: 048
  8. IRINOTECAN HCL [Suspect]
     Route: 041
     Dates: start: 20100721, end: 20101011
  9. FLUOROURACIL [Suspect]
     Route: 041
     Dates: start: 20101012
  10. ENALAPRIL MALEATE [Concomitant]
     Dosage: UNK
     Route: 048
  11. IRINOTECAN HCL [Suspect]
     Route: 041
     Dates: start: 20101012, end: 20110401
  12. FLUOROURACIL [Suspect]
     Route: 041
     Dates: start: 20101012, end: 20110401
  13. PANITUMUMAB [Suspect]
     Indication: COLORECTAL CANCER
     Dosage: 6 MG, Q2WK
     Route: 041
     Dates: start: 20100721, end: 20100914
  14. IRINOTECAN HCL [Suspect]
     Indication: COLORECTAL CANCER
     Route: 041
     Dates: start: 20100721
  15. IRINOTECAN HCL [Suspect]
     Route: 041
     Dates: start: 20101012
  16. LEUCOVORIN CALCIUM [Concomitant]
     Indication: COLORECTAL CANCER
     Route: 041
     Dates: start: 20100721

REACTIONS (4)
  - STOMATITIS [None]
  - ACNE [None]
  - EYE PRURITUS [None]
  - NEUTROPHIL COUNT DECREASED [None]
